FAERS Safety Report 13424811 (Version 1)
Quarter: 2017Q2

REPORT INFORMATION
  Report Type: Spontaneous
  Country: US (occurrence: US)
  Receive Date: 20170410
  Receipt Date: 20170410
  Transmission Date: 20170830
  Serious: Yes (Disabling, Other)
  Sender: FDA-Public Use
  Company Number: US-TEIKOKU PHARMA USA-TPU2017-00175

PATIENT
  Sex: Female

DRUGS (2)
  1. GENICULAR INJECTION [Concomitant]
  2. LIDODERM [Suspect]
     Active Substance: LIDOCAINE
     Indication: ARTHRITIS

REACTIONS (6)
  - Tendon rupture [Unknown]
  - Knee arthroplasty [Unknown]
  - Procedural pain [Not Recovered/Not Resolved]
  - Tenoplasty [Unknown]
  - Patellectomy [Unknown]
  - Disability [Not Recovered/Not Resolved]
